FAERS Safety Report 24099653 (Version 1)
Quarter: 2024Q3

REPORT INFORMATION
  Report Type: Spontaneous
  Country: US (occurrence: US)
  Receive Date: 20240716
  Receipt Date: 20240716
  Transmission Date: 20241017
  Serious: No
  Sender: NOVO NORDISK
  Company Number: US-NOVOPROD-1213988

PATIENT
  Sex: Female

DRUGS (3)
  1. OZEMPIC [Suspect]
     Active Substance: SEMAGLUTIDE
     Indication: Obesity
     Dosage: 0.5 MG, QW
     Route: 058
     Dates: start: 202302
  2. OZEMPIC [Suspect]
     Active Substance: SEMAGLUTIDE
     Indication: Hyperlipidaemia
  3. OZEMPIC [Suspect]
     Active Substance: SEMAGLUTIDE
     Indication: Osteoarthritis
     Dosage: 0.25 MG
     Route: 058

REACTIONS (3)
  - Gastrointestinal disorder [Unknown]
  - Dizziness [Unknown]
  - Off label use [Unknown]
